FAERS Safety Report 4726259-9 (Version None)
Quarter: 2005Q3

REPORT INFORMATION
  Report Type: 
  Country: None (occurrence: None)
  Receive Date: 20050725
  Receipt Date: 20050714
  Transmission Date: 20060218
  Serious: Yes (Disabling)
  Sender: FDA-Public Use
  Company Number: 2005-130477-NL

PATIENT
  Age: 5 Year
  Sex: Female

DRUGS (5)
  1. PANCURONIUM [Suspect]
     Indication: LIFE SUPPORT
  2. FENTANYL [Suspect]
  3. NITROUS OXIDE [Suspect]
  4. AMINOGLYCOSIDE [Suspect]
  5. LOOP DIURETIC [Suspect]

REACTIONS (1)
  - DEAFNESS NEUROSENSORY [None]
